FAERS Safety Report 24315848 (Version 1)
Quarter: 2024Q3

REPORT INFORMATION
  Report Type: Spontaneous
  Country: AU (occurrence: AU)
  Receive Date: 20240913
  Receipt Date: 20240913
  Transmission Date: 20241017
  Serious: Yes (Hospitalization, Other)
  Sender: RANBAXY
  Company Number: AU-SUN PHARMACEUTICAL INDUSTRIES LTD-2024R1-467488

PATIENT

DRUGS (4)
  1. SERTRALINE [Suspect]
     Active Substance: SERTRALINE HYDROCHLORIDE
     Indication: Product used for unknown indication
     Dosage: 400 MILLIGRAM
     Route: 048
  2. NAPROXEN [Suspect]
     Active Substance: NAPROXEN
     Indication: Product used for unknown indication
     Dosage: 3000 MILLIGRAM
     Route: 048
  3. ORPHENADRINE [Suspect]
     Active Substance: ORPHENADRINE
     Indication: Product used for unknown indication
     Dosage: 2000 MILLIGRAM
     Route: 048
  4. OXYCODONE [Suspect]
     Active Substance: OXYCODONE
     Indication: Product used for unknown indication
     Dosage: 40 MILLIGRAM
     Route: 048

REACTIONS (3)
  - Delirium [Unknown]
  - Mydriasis [Unknown]
  - Tachycardia [Unknown]
